FAERS Safety Report 18750282 (Version 1)
Quarter: 2021Q1

REPORT INFORMATION
  Report Type: Spontaneous
  Country: US (occurrence: US)
  Receive Date: 20210118
  Receipt Date: 20210118
  Transmission Date: 20210419
  Serious: Yes (Other)
  Sender: FDA-Public Use
  Company Number: US-DRREDDYS-USA/USA/21/0131105

PATIENT
  Age: 35 Year
  Sex: Female

DRUGS (19)
  1. LIDOCAINE. [Suspect]
     Active Substance: LIDOCAINE
     Route: 042
  2. LIDOCAINE. [Suspect]
     Active Substance: LIDOCAINE
     Dosage: TOTAL INFUSION FOR 31.5 HOURS
  3. DOBUTAMINE HYDROCHLORIDE. [Suspect]
     Active Substance: DOBUTAMINE HYDROCHLORIDE
     Indication: VENTRICULAR TACHYCARDIA
  4. EPINEPHRINE. [Suspect]
     Active Substance: EPINEPHRINE
     Indication: VENTRICULAR TACHYCARDIA
  5. EPINEPHRINE. [Suspect]
     Active Substance: EPINEPHRINE
  6. LIDOCAINE. [Suspect]
     Active Substance: LIDOCAINE
     Indication: LOCAL ANAESTHESIA
     Route: 042
  7. LIDOCAINE. [Suspect]
     Active Substance: LIDOCAINE
     Route: 042
  8. PROPOFOL INJECTABLE EMULSION [Suspect]
     Active Substance: PROPOFOL
     Indication: LOCAL ANAESTHESIA
  9. VASOPRESSIN. [Suspect]
     Active Substance: VASOPRESSIN
     Indication: VENTRICULAR TACHYCARDIA
  10. LIDOCAINE. [Suspect]
     Active Substance: LIDOCAINE
     Route: 040
  11. FENTANYL CITRATE. [Suspect]
     Active Substance: FENTANYL CITRATE
     Indication: LOCAL ANAESTHESIA
  12. PHENYLEPHRINE [Suspect]
     Active Substance: PHENYLEPHRINE HYDROCHLORIDE
     Indication: VENTRICULAR TACHYCARDIA
  13. NOREPINEPHRINE. [Suspect]
     Active Substance: NOREPINEPHRINE
     Indication: VENTRICULAR TACHYCARDIA
  14. AMIODARONE HYDROCHLORIDE. [Suspect]
     Active Substance: AMIODARONE HYDROCHLORIDE
     Indication: VENTRICULAR ARRHYTHMIA
  15. AMIODARONE HYDROCHLORIDE. [Suspect]
     Active Substance: AMIODARONE HYDROCHLORIDE
  16. LIDOCAINE. [Suspect]
     Active Substance: LIDOCAINE
     Route: 042
  17. KETAMINE [Suspect]
     Active Substance: KETAMINE
     Indication: LOCAL ANAESTHESIA
     Route: 042
  18. KETAMINE [Suspect]
     Active Substance: KETAMINE
  19. DOBUTAMINE HYDROCHLORIDE. [Suspect]
     Active Substance: DOBUTAMINE HYDROCHLORIDE

REACTIONS (4)
  - Local anaesthetic systemic toxicity [Unknown]
  - Ventricular arrhythmia [Unknown]
  - Drug interaction [Unknown]
  - Electrocardiogram QT prolonged [Unknown]
